FAERS Safety Report 7927319-1 (Version None)
Quarter: 2011Q4

REPORT INFORMATION
  Report Type: 
  Country: None (occurrence: None)
  Receive Date: 20111117
  Receipt Date: 20111117
  Transmission Date: 20120403
  Serious: Yes (Hospitalization)
  Sender: FDA-Public Use
  Company Number: None

PATIENT
  Age: 79 Year
  Sex: Female

DRUGS (1)
  1. ENBREL [Suspect]
     Dosage: 50MG ONCE A WEEK SQ
     Route: 058
     Dates: start: 20110728, end: 20111109

REACTIONS (2)
  - HYPOAESTHESIA [None]
  - PARAESTHESIA [None]
